FAERS Safety Report 5976780-0 (Version None)
Quarter: 2008Q4

REPORT INFORMATION
  Report Type: 
  Country: None (occurrence: None)
  Receive Date: 20081203
  Receipt Date: 20080917
  Transmission Date: 20090506
  Serious: No
  Sender: FDA-Public Use
  Company Number: US-AMGEN-KDL307967

PATIENT
  Sex: Female
  Weight: 98.1 kg

DRUGS (11)
  1. ENBREL [Suspect]
     Indication: RHEUMATOID ARTHRITIS
     Route: 058
     Dates: start: 20080108
  2. ARAVA [Concomitant]
  3. METHOTREXATE [Concomitant]
  4. IMURAN [Concomitant]
  5. TETRAZEPAM [Concomitant]
  6. ARIMIDEX [Concomitant]
  7. HYDROCHLOROTHIAZIDE [Concomitant]
  8. BONIVA [Concomitant]
  9. PROVIGIL [Concomitant]
  10. PROZAC [Concomitant]
  11. OXYCODONE HCL [Concomitant]

REACTIONS (9)
  - ABDOMINAL PAIN UPPER [None]
  - ALOPECIA [None]
  - ARTHRALGIA [None]
  - DIARRHOEA [None]
  - FATIGUE [None]
  - INJECTION SITE HAEMATOMA [None]
  - JOINT STIFFNESS [None]
  - STOMATITIS [None]
  - VOMITING [None]
